FAERS Safety Report 11506321 (Version 1)
Quarter: 2015Q3

REPORT INFORMATION
  Report Type: Spontaneous
  Country: US (occurrence: US)
  Receive Date: 20150915
  Receipt Date: 20150915
  Transmission Date: 20151125
  Serious: Yes (Other)
  Sender: FDA-Public Use
  Company Number: US-ROCHE-1007182

PATIENT
  Sex: Female

DRUGS (2)
  1. PEGASYS [Suspect]
     Active Substance: PEGINTERFERON ALFA-2A
     Indication: PRODUCT USED FOR UNKNOWN INDICATION
     Dosage: ROUTE, DOSE, FORM AND FREQUENCY: NOT REPORTED
     Route: 065
  2. COPEGUS [Suspect]
     Active Substance: RIBAVIRIN
     Indication: PRODUCT USED FOR UNKNOWN INDICATION
     Dosage: ROUTE, DOSE, FORM AND FREQUENCY: NOT REPORTED
     Route: 065

REACTIONS (5)
  - Arthralgia [Unknown]
  - Memory impairment [Unknown]
  - Insomnia [Unknown]
  - Blindness [Unknown]
  - Disturbance in attention [Unknown]
